FAERS Safety Report 10525760 (Version 3)
Quarter: 2014Q4

REPORT INFORMATION
  Report Type: Spontaneous
  Country: JP (occurrence: JP)
  Receive Date: 20141017
  Receipt Date: 20141227
  Transmission Date: 20150528
  Serious: Yes (Hospitalization)
  Sender: FDA-Public Use
  Company Number: PHHY2014JP126299

PATIENT
  Age: 30 Year
  Sex: Male

DRUGS (5)
  1. CEFAZOLIN [Concomitant]
     Active Substance: CEFAZOLIN
     Indication: PYREXIA
     Route: 065
  2. CEFOZOPRAN [Concomitant]
     Active Substance: CEFOZOPRAN
     Indication: PYREXIA
     Route: 042
  3. CEFDINIR. [Suspect]
     Active Substance: CEFDINIR
     Indication: PYREXIA
     Route: 065
  4. DICLOFENAC [Suspect]
     Active Substance: DICLOFENAC
     Indication: PYREXIA
     Dosage: 25 MG, QD
     Route: 054
     Dates: start: 20070416, end: 20070417
  5. SULFAMETHOXAZOLE AND TRIMETHOPRIM [Suspect]
     Active Substance: SULFAMETHOXAZOLE\TRIMETHOPRIM
     Indication: PNEUMONIA MYCOPLASMAL
     Route: 065

REACTIONS (8)
  - Febrile neutropenia [Unknown]
  - Cytomegalovirus viraemia [Unknown]
  - Oral candidiasis [Unknown]
  - Pneumonia mycoplasmal [Unknown]
  - Drug ineffective [Unknown]
  - Blood pressure decreased [Recovered/Resolved]
  - Hypoxia [Recovered/Resolved]
  - Hepatic enzyme increased [Unknown]

NARRATIVE: CASE EVENT DATE: 20070419
